FAERS Safety Report 5447589-1 (Version None)
Quarter: 2007Q3

REPORT INFORMATION
  Report Type: 
  Country: None (occurrence: None)
  Receive Date: 20070905
  Receipt Date: 20070820
  Transmission Date: 20080115
  Serious: Yes (Hospitalization)
  Sender: FDA-Public Use
  Company Number: 2006P1000280

PATIENT
  Age: 72 Year
  Sex: Female
  Weight: 75 kg

DRUGS (11)
  1. RETEPLASE           (RETEPLASE) [Suspect]
     Indication: ACUTE MYOCARDIAL INFARCTION
     Dosage: 5 IU;BID;IV
     Route: 042
     Dates: start: 20050926, end: 20050926
  2. ABCIXIMAB           (ABCIXIMAB) [Suspect]
     Indication: ACUTE MYOCARDIAL INFARCTION
     Dosage: 9.4 MG;X1;IV; 37.2 MG;X1;IV
     Route: 042
     Dates: start: 20050926, end: 20050926
  3. ABCIXIMAB           (ABCIXIMAB) [Suspect]
     Indication: ACUTE MYOCARDIAL INFARCTION
     Dosage: 9.4 MG;X1;IV; 37.2 MG;X1;IV
     Route: 042
     Dates: start: 20050926, end: 20050926
  4. PLACEBO        (PLACEBO) [Suspect]
     Indication: ACUTE MYOCARDIAL INFARCTION
     Dosage: 0.25 MG/KG;X1;IV
     Route: 042
     Dates: start: 20050926, end: 20050926
  5. ASPIRIN [Concomitant]
  6. TICLOPIDINE HCL [Concomitant]
  7. BISOPROLOL [Concomitant]
  8. ENALAPRIL MALEATE [Concomitant]
  9. SIMVASTATIN [Concomitant]
  10. RAMIPRIL [Concomitant]
  11. INDAPAMIDE [Concomitant]

REACTIONS (2)
  - ARTERIOSCLEROSIS CORONARY ARTERY [None]
  - CORONARY ARTERY STENOSIS [None]
